FAERS Safety Report 5643327-8 (Version None)
Quarter: 2008Q1

REPORT INFORMATION
  Report Type: 
  Country: None (occurrence: None)
  Receive Date: 20080131
  Receipt Date: 20071002
  Transmission Date: 20080703
  Serious: Yes (Hospitalization)
  Sender: FDA-Public Use
  Company Number: 163-21880-07100296

PATIENT
  Age: 56 Year
  Sex: Female

DRUGS (5)
  1. REVLIMID [Suspect]
     Indication: MULTIPLE MYELOMA
     Dosage: 25 MG, DAILY 21D/28D, ORAL
     Route: 048
     Dates: start: 20070813, end: 20070101
  2. REVLIMID [Suspect]
     Indication: MULTIPLE MYELOMA
     Dosage: 25 MG, DAILY 21D/28D, ORAL
     Route: 048
     Dates: start: 20070910
  3. DEXAMETHASONE TAB [Concomitant]
  4. AREDIA [Concomitant]
  5. DIFLUCAN [Concomitant]

REACTIONS (5)
  - CHILLS [None]
  - DIARRHOEA [None]
  - HYPOTENSION [None]
  - PYREXIA [None]
  - SEPTIC SHOCK [None]
